FAERS Safety Report 7106763-9 (Version None)
Quarter: 2010Q4

REPORT INFORMATION
  Report Type: 
  Country: None (occurrence: None)
  Receive Date: 20101116
  Receipt Date: 20101104
  Transmission Date: 20110411
  Serious: Yes (Hospitalization)
  Sender: FDA-Public Use
  Company Number: AU-MERCK-1011USA00533

PATIENT
  Age: 60 Year
  Sex: Female

DRUGS (9)
  1. ZOCOR [Suspect]
     Route: 048
     Dates: end: 20100813
  2. ASPIRIN [Concomitant]
     Route: 065
  3. CARVEDILOL [Concomitant]
     Route: 065
  4. CLOPIDOGREL HYDROCHLORIDE [Concomitant]
     Route: 065
  5. FUROSEMIDE [Concomitant]
     Route: 065
  6. NITROGLYCERIN [Concomitant]
     Route: 065
  7. LANTUS [Concomitant]
     Route: 065
  8. METFORMIN [Concomitant]
     Route: 065
  9. TRANDOLAPRIL [Concomitant]
     Route: 065

REACTIONS (1)
  - RENAL FAILURE ACUTE [None]
